FAERS Safety Report 9642075 (Version 1)
Quarter: 2013Q4

REPORT INFORMATION
  Report Type: Spontaneous
  Country: ES (occurrence: ES)
  Receive Date: 20131023
  Receipt Date: 20131023
  Transmission Date: 20140711
  Serious: Yes (Other)
  Sender: FDA-Public Use
  Company Number: PHHY2013ES116052

PATIENT
  Age: 50 Year
  Sex: Male

DRUGS (2)
  1. SUMATRIPTAN SANDOZ [Suspect]
     Indication: CLUSTER HEADACHE
     Dosage: 4 DF, UNK
     Route: 048
     Dates: start: 20130925, end: 20130925
  2. SUMATRIPTAN MYL [Concomitant]
     Indication: CLUSTER HEADACHE
     Dosage: 50 MG, UNK
     Route: 048
     Dates: start: 20130916, end: 20130919

REACTIONS (5)
  - Product substitution issue [Recovered/Resolved]
  - Swelling [Recovered/Resolved]
  - Choking sensation [Recovered/Resolved]
  - Chest discomfort [Recovered/Resolved]
  - Palpitations [Recovered/Resolved]
